FAERS Safety Report 18486764 (Version 1)
Quarter: 2020Q4

REPORT INFORMATION
  Report Type: Spontaneous
  Country: US (occurrence: US)
  Receive Date: 20201110
  Receipt Date: 20201110
  Transmission Date: 20210114
  Serious: No
  Sender: FDA-Public Use
  Company Number: US-IGSA-BIG0012011

PATIENT
  Sex: Female

DRUGS (1)
  1. GAMUNEX-C [Suspect]
     Active Substance: HUMAN IMMUNOGLOBULIN G
     Indication: MYASTHENIA GRAVIS
     Dosage: UNK, UNKNOWN
     Route: 065

REACTIONS (6)
  - Rash [Unknown]
  - Back pain [Unknown]
  - Blood pressure increased [Unknown]
  - Pruritus [Unknown]
  - Limb discomfort [Unknown]
  - Constipation [Unknown]
